FAERS Safety Report 26122637 (Version 1)
Quarter: 2025Q4

REPORT INFORMATION
  Report Type: Spontaneous
  Country: TW (occurrence: TW)
  Receive Date: 20251204
  Receipt Date: 20251204
  Transmission Date: 20260118
  Serious: No
  Sender: NOVARTIS
  Company Number: TW-GLAXOSMITHKLINE-TWCH2021024427

PATIENT
  Sex: Female

DRUGS (1)
  1. LAMISIL [Suspect]
     Active Substance: TERBINAFINE HYDROCHLORIDE
     Indication: Miliaria
     Dosage: UNK
     Route: 065

REACTIONS (4)
  - Product use in unapproved indication [Unknown]
  - Exposure during pregnancy [Unknown]
  - Product use issue [Unknown]
  - Drug effective for unapproved indication [Unknown]
